FAERS Safety Report 7451959-X (Version None)
Quarter: 2011Q2

REPORT INFORMATION
  Report Type: 
  Country: None (occurrence: None)
  Receive Date: 20110502
  Receipt Date: 20110426
  Transmission Date: 20111010
  Serious: Yes (Other)
  Sender: FDA-Public Use
  Company Number: PHHY2011GB34848

PATIENT
  Age: 81 Year
  Sex: Female

DRUGS (3)
  1. WARFARIN [Suspect]
     Dosage: 2 MG, QD
  2. WARFARIN [Interacting]
     Dosage: 1 MG, UNK
  3. GLUCOSAMINE [Interacting]
     Dosage: 1500 MG, QD

REACTIONS (3)
  - DRUG INTERACTION [None]
  - INTERNATIONAL NORMALISED RATIO INCREASED [None]
  - PARAESTHESIA [None]
